FAERS Safety Report 24580100 (Version 1)
Quarter: 2024Q4

REPORT INFORMATION
  Report Type: Spontaneous
  Country: US (occurrence: None)
  Receive Date: 20241104
  Receipt Date: 20241104
  Transmission Date: 20250115
  Serious: Yes (Life-Threatening, Hospitalization)
  Sender: Public
  Company Number: None

PATIENT
  Age: 39 Year
  Sex: Male
  Weight: 84.5 kg

DRUGS (1)
  1. ABROCITINIB [Suspect]
     Active Substance: ABROCITINIB
     Indication: Psoriasis
     Dates: start: 20241009, end: 20241029

REACTIONS (5)
  - Hypersensitivity [None]
  - Stevens-Johnson syndrome [None]
  - Disseminated herpes simplex [None]
  - Dyskinesia [None]
  - Cardiac arrest [None]

NARRATIVE: CASE EVENT DATE: 20241030
